FAERS Safety Report 4560889-2 (Version None)
Quarter: 2005Q1

REPORT INFORMATION
  Report Type: 
  Country: None (occurrence: None)
  Receive Date: 20050126
  Receipt Date: 20050114
  Transmission Date: 20050727
  Serious: Yes (Hospitalization)
  Sender: FDA-Public Use
  Company Number: AU-JNJFOC-20050104434

PATIENT
  Sex: Female

DRUGS (3)
  1. TRAMAL [Suspect]
     Indication: DRUG USE FOR UNKNOWN INDICATION
     Route: 049
  2. TRIPHASIL-21 [Concomitant]
     Route: 049
  3. TRIPHASIL-21 [Concomitant]
     Indication: CONTRACEPTION
     Route: 049

REACTIONS (3)
  - HYPERHIDROSIS [None]
  - ORTHOSTATIC HYPOTENSION [None]
  - SEDATION [None]
